FAERS Safety Report 18520990 (Version 1)
Quarter: 2020Q4

REPORT INFORMATION
  Report Type: Report from Study
  Country: US (occurrence: US)
  Receive Date: 20201119
  Receipt Date: 20201119
  Transmission Date: 20210114
  Serious: Yes (Hospitalization, Other)
  Sender: FDA-Public Use
  Company Number: US-ASTRAZENECA-2020SF42701

PATIENT
  Age: 994 Month
  Sex: Male
  Weight: 87 kg

DRUGS (2)
  1. TAGRISSO [Suspect]
     Active Substance: OSIMERTINIB
     Indication: LUNG NEOPLASM MALIGNANT
     Route: 048
     Dates: start: 2019, end: 202007
  2. OXYGEN. [Concomitant]
     Active Substance: OXYGEN
     Dates: start: 202007

REACTIONS (5)
  - Hypersensitivity [Unknown]
  - Pneumonia [Recovered/Resolved]
  - Cough [Unknown]
  - Lung disorder [Unknown]
  - Dyspnoea [Not Recovered/Not Resolved]

NARRATIVE: CASE EVENT DATE: 202007
